FAERS Safety Report 7383020-7 (Version None)
Quarter: 2011Q1

REPORT INFORMATION
  Report Type: 
  Country: None (occurrence: None)
  Receive Date: 20110330
  Receipt Date: 20110323
  Transmission Date: 20110831
  Serious: No
  Sender: FDA-Public Use
  Company Number: US-PFIZER INC-2011064640

PATIENT

DRUGS (2)
  1. GLIPIZIDE [Suspect]
     Dosage: UNK
  2. VICTOZA [Suspect]
     Dosage: UNK

REACTIONS (3)
  - VOMITING [None]
  - ABDOMINAL PAIN UPPER [None]
  - NAUSEA [None]
